FAERS Safety Report 7971041 (Version 2)
Quarter: 2016Q2

REPORT INFORMATION
  Report Type: Spontaneous
  Country: FR (occurrence: FR)
  Receive Date: 20110602
  Receipt Date: 20160414
  Transmission Date: 20160815
  Serious: No
  Sender: FDA-Public Use
  Company Number: FR-BRISTOL-MYERS SQUIBB COMPANY-15784424

PATIENT
  Age: 71 Year
  Sex: Female

DRUGS (4)
  1. AVASTIN [Suspect]
     Active Substance: BEVACIZUMAB
     Indication: BREAST CANCER
     Dosage: 1DF:25MG/ML
     Route: 042
     Dates: start: 201007, end: 20110415
  2. TAMOXIFEN [Suspect]
     Active Substance: TAMOXIFEN
     Indication: BREAST CANCER
     Dosage: TAMOXIFENE SANDOZ
     Route: 065
     Dates: start: 20110107, end: 20110318
  3. ZOMETA [Suspect]
     Active Substance: ZOLEDRONIC ACID
     Indication: BONE DISORDER
     Dosage: 1DF:4MG/5ML  16AUG10-18MAR11  15APR11-UNK
     Route: 042
     Dates: start: 20100816
  4. TAXOL [Suspect]
     Active Substance: PACLITAXEL
     Indication: BREAST CANCER
     Dosage: 1DF:100MG/17ML
     Route: 065
     Dates: start: 201007, end: 20101222

REACTIONS (2)
  - Periodontal destruction [Recovered/Resolved]
  - Noninfective gingivitis [Recovered/Resolved]

NARRATIVE: CASE EVENT DATE: 20110419
